FAERS Safety Report 21948937 (Version 1)
Quarter: 2023Q1

REPORT INFORMATION
  Report Type: Spontaneous
  Country: NL (occurrence: NL)
  Receive Date: 20230203
  Receipt Date: 20230203
  Transmission Date: 20230418
  Serious: Yes (Hospitalization, Other)
  Sender: FDA-Public Use
  Company Number: NL-AMGEN-NLDSP2023018526

PATIENT

DRUGS (1)
  1. ADALIMUMAB [Suspect]
     Active Substance: ADALIMUMAB
     Indication: Product used for unknown indication
     Dosage: 40 MILLIGRAM, Q2WK
     Route: 065

REACTIONS (53)
  - Pericarditis [Unknown]
  - Pneumonia [Unknown]
  - Malignant melanoma [Unknown]
  - Lung neoplasm malignant [Unknown]
  - Pneumocystis jirovecii pneumonia [Unknown]
  - Thrombocytopenia [Unknown]
  - Dermatitis atopic [Unknown]
  - Dermatitis psoriasiform [Unknown]
  - Bladder discomfort [Unknown]
  - Abdominal discomfort [Unknown]
  - Dermatitis allergic [Unknown]
  - Skin papilloma [Unknown]
  - Ill-defined disorder [Unknown]
  - Fatigue [Unknown]
  - Skin disorder [Unknown]
  - Dry eye [Unknown]
  - Pruritus [Unknown]
  - Alopecia [Unknown]
  - Hyperhidrosis [Unknown]
  - Psoriasis [Unknown]
  - Purpura [Unknown]
  - Rash papular [Unknown]
  - Urinary tract infection [Unknown]
  - Herpes zoster [Unknown]
  - Influenza [Unknown]
  - Sinusitis [Unknown]
  - Viral infection [Unknown]
  - Wound infection [Unknown]
  - Injection site reaction [Unknown]
  - Injection site pain [Unknown]
  - Oedema peripheral [Unknown]
  - Abdominal pain [Unknown]
  - Diarrhoea [Unknown]
  - Nausea [Unknown]
  - Tongue discolouration [Unknown]
  - Liver function test abnormal [Unknown]
  - Hepatic enzyme abnormal [Unknown]
  - Weight increased [Unknown]
  - Dizziness [Unknown]
  - Balance disorder [Unknown]
  - Disturbance in attention [Unknown]
  - Headache [Unknown]
  - Migraine [Unknown]
  - Dyspnoea [Unknown]
  - Cough [Unknown]
  - Oropharyngeal pain [Unknown]
  - Increased tendency to bruise [Unknown]
  - Arthralgia [Unknown]
  - Back pain [Unknown]
  - Anxiety [Unknown]
  - Listless [Unknown]
  - Vertigo [Unknown]
  - Drug ineffective [Unknown]
